FAERS Safety Report 4603666-6 (Version None)
Quarter: 2005Q1

REPORT INFORMATION
  Report Type: 
  Country: None (occurrence: None)
  Receive Date: 20050308
  Receipt Date: 20050308
  Transmission Date: 20050727
  Serious: Yes (Death)
  Sender: FDA-Public Use
  Company Number: None

PATIENT
  Sex: Male

DRUGS (10)
  1. OXALIPLATIN [Suspect]
     Indication: NON-SMALL CELL LUNG CANCER
     Dosage: 40 MG/M2, D1, D8; IV
     Route: 042
     Dates: start: 20041220
  2. OXALIPLATIN [Suspect]
     Indication: NON-SMALL CELL LUNG CANCER
     Dosage: 40 MG/M2, D1, D8; IV
     Route: 042
     Dates: start: 20041227
  3. IRINOTECAN HCL [Suspect]
     Indication: NON-SMALL CELL LUNG CANCER
     Dosage: 50 MG/M2, D1, D8; IV
     Route: 042
     Dates: start: 20041220
  4. IRINOTECAN HCL [Suspect]
     Indication: NON-SMALL CELL LUNG CANCER
     Dosage: 50 MG/M2, D1, D8; IV
     Route: 042
     Dates: start: 20041227
  5. PREVACID [Concomitant]
  6. LEVOFLOXACIN [Concomitant]
  7. PROSCAR [Concomitant]
  8. TOPROL-XL [Concomitant]
  9. MS CONTIN [Concomitant]
  10. VICODIN [Concomitant]

REACTIONS (15)
  - ANAEMIA [None]
  - DISEASE PROGRESSION [None]
  - DYSPNOEA [None]
  - GASTRODUODENAL ULCER [None]
  - HAEMOPTYSIS [None]
  - MELAENA [None]
  - METASTASES TO BONE [None]
  - METASTASES TO SMALL INTESTINE [None]
  - METASTASES TO STOMACH [None]
  - MOUTH HAEMORRHAGE [None]
  - OXYGEN SATURATION DECREASED [None]
  - POST PROCEDURAL HAEMORRHAGE [None]
  - RADIATION INJURY [None]
  - TACHYCARDIA [None]
  - TOOTH EXTRACTION [None]
